FAERS Safety Report 20405290 (Version 1)
Quarter: 2022Q1

REPORT INFORMATION
  Report Type: Spontaneous
  Country: US (occurrence: None)
  Receive Date: 20220128
  Receipt Date: 20220128
  Transmission Date: 20220424
  Serious: No
  Sender: FDA-Public Use
  Company Number: None

PATIENT
  Age: 81 Year
  Sex: Female

DRUGS (1)
  1. PRALUENT [Suspect]
     Active Substance: ALIROCUMAB
     Indication: Product used for unknown indication
     Dosage: OTHER FREQUENCY : 150MG Q 2 WEEKS;?
     Route: 058
     Dates: end: 20220105

REACTIONS (3)
  - Urticaria [None]
  - Pruritus [None]
  - Diarrhoea [None]
